FAERS Safety Report 15012448 (Version 1)
Quarter: 2018Q2

REPORT INFORMATION
  Report Type: Spontaneous
  Country: DE (occurrence: DE)
  Receive Date: 20180614
  Receipt Date: 20180614
  Transmission Date: 20180711
  Serious: Yes (Hospitalization)
  Sender: FDA-Public Use
  Company Number: DE-TEVA-2018-DE-907648

PATIENT
  Age: 76 Year
  Sex: Female

DRUGS (8)
  1. PROPAFENONE. [Suspect]
     Active Substance: PROPAFENONE
     Dosage: 2-2-2-0
     Route: 065
  2. CYMBALTA [Suspect]
     Active Substance: DULOXETINE HYDROCHLORIDE
     Dosage: 1-0-0-0
     Route: 065
  3. METOPROLOL. [Concomitant]
     Active Substance: METOPROLOL
     Dosage: 1-0-0-1
     Route: 065
  4. LEVOTHYROXIN [Concomitant]
     Active Substance: LEVOTHYROXINE
     Dosage: 1-0-0-0
     Route: 065
  5. HYDROCHLOROTHIAZID [Concomitant]
     Active Substance: HYDROCHLOROTHIAZIDE
     Dosage: 1-0-0-0
     Route: 065
  6. ELIQUIS [Concomitant]
     Active Substance: APIXABAN
     Dosage: 1-0-1-0
     Route: 065
  7. PANTOPRAZOL [Concomitant]
     Active Substance: PANTOPRAZOLE SODIUM
     Dosage: 1-0-1-0
     Route: 065
  8. RAMIPRIL. [Concomitant]
     Active Substance: RAMIPRIL
     Dosage: 1-0-0-1
     Route: 065

REACTIONS (6)
  - Dyspnoea [Unknown]
  - Paraesthesia [Unknown]
  - Drug prescribing error [Unknown]
  - Palpitations [Unknown]
  - Dizziness [Unknown]
  - Night sweats [Unknown]
